FAERS Safety Report 14568607 (Version 1)
Quarter: 2018Q1

REPORT INFORMATION
  Report Type: Spontaneous
  Country: US (occurrence: US)
  Receive Date: 20180223
  Receipt Date: 20180223
  Transmission Date: 20180509
  Serious: No
  Sender: FDA-Public Use
  Company Number: US-MYLANLABS-2018M1007607

PATIENT
  Sex: Female
  Weight: 78.47 kg

DRUGS (1)
  1. LIDOCAINE PATCH [Suspect]
     Active Substance: LIDOCAINE
     Indication: RIB FRACTURE
     Dosage: 5 %, UNK
     Route: 062

REACTIONS (2)
  - Off label use [Unknown]
  - Application site vesicles [Not Recovered/Not Resolved]
